FAERS Safety Report 14018882 (Version 1)
Quarter: 2017Q3

REPORT INFORMATION
  Report Type: Spontaneous
  Country: FR (occurrence: FR)
  Receive Date: 20170928
  Receipt Date: 20170928
  Transmission Date: 20171128
  Serious: Yes (Other)
  Sender: FDA-Public Use
  Company Number: FR-ACCORD-059304

PATIENT
  Age: 13 Year
  Sex: Female

DRUGS (2)
  1. CISPLATIN ACCORD [Suspect]
     Active Substance: CISPLATIN
     Indication: OSTEOSARCOMA
     Route: 042
     Dates: start: 20170713, end: 20170830
  2. DOXORUBICIN [Concomitant]
     Active Substance: DOXORUBICIN
     Dosage: 37.5 MG/M^2

REACTIONS (5)
  - Respiratory disorder [Recovered/Resolved]
  - Cough [Recovered/Resolved]
  - Off label use [Unknown]
  - Drug hypersensitivity [Recovered/Resolved]
  - Throat irritation [Recovered/Resolved]

NARRATIVE: CASE EVENT DATE: 20170830
